FAERS Safety Report 6040255-3 (Version None)
Quarter: 2009Q1

REPORT INFORMATION
  Report Type: 
  Country: None (occurrence: None)
  Receive Date: 20090116
  Receipt Date: 20080128
  Transmission Date: 20090719
  Serious: No
  Sender: FDA-Public Use
  Company Number: US-BRISTOL-MYERS SQUIBB COMPANY-14056311

PATIENT
  Age: 8 Year
  Sex: Male

DRUGS (4)
  1. ABILIFY [Suspect]
     Dosage: DOSE:1/2 TAB FOR 3 DAYS AND A WHOLE TABLET ON THE 4TH DAY.
     Route: 048
  2. ADDERALL 10 [Concomitant]
  3. ADDERALL XR 20 [Concomitant]
  4. CLONIDINE [Concomitant]

REACTIONS (2)
  - FEELING ABNORMAL [None]
  - NERVOUSNESS [None]
